FAERS Safety Report 9110149 (Version 1)
Quarter: 2013Q1

REPORT INFORMATION
  Report Type: Report from Study
  Country: CA (occurrence: CA)
  Receive Date: 20130222
  Receipt Date: 20130222
  Transmission Date: 20140127
  Serious: Yes (Other)
  Sender: FDA-Public Use
  Company Number: CA-ROCHE-1193726

PATIENT
  Sex: Male

DRUGS (11)
  1. ZELBORAF [Suspect]
     Indication: METASTATIC MALIGNANT MELANOMA
     Route: 048
     Dates: start: 201301, end: 201302
  2. INSULIN [Concomitant]
  3. AGGRENOX [Concomitant]
  4. CALCITROL [Concomitant]
  5. CANDESARTAN [Concomitant]
  6. CHOLECALCIFEROL [Concomitant]
  7. FUROSEMIDE [Concomitant]
  8. LISINOPRIL [Concomitant]
  9. ROSUVASTATIN [Concomitant]
  10. SODIUM BICARBONATE [Concomitant]
  11. AMLODIPINE [Concomitant]

REACTIONS (1)
  - Drug intolerance [Unknown]
